FAERS Safety Report 5194016-8 (Version None)
Quarter: 2006Q4

REPORT INFORMATION
  Report Type: 
  Country: None (occurrence: None)
  Receive Date: 20061228
  Receipt Date: 20061129
  Transmission Date: 20070319
  Serious: No
  Sender: FDA-Public Use
  Company Number: US-GLAXOSMITHKLINE-A0629461A

PATIENT
  Age: 76 Year
  Sex: Female

DRUGS (6)
  1. FLOVENT [Suspect]
     Indication: DRUG USE FOR UNKNOWN INDICATION
     Route: 055
     Dates: start: 20060606
  2. VERAPAMIL [Concomitant]
  3. THIORIDAZINE HCL [Concomitant]
  4. SENNA [Concomitant]
  5. DOCUSATE [Concomitant]
  6. ZELNORM [Concomitant]

REACTIONS (2)
  - PHARMACEUTICAL PRODUCT COMPLAINT [None]
  - THROAT IRRITATION [None]
